FAERS Safety Report 13172457 (Version 3)
Quarter: 2017Q1

REPORT INFORMATION
  Report Type: Spontaneous
  Country: CH (occurrence: CH)
  Receive Date: 20170201
  Receipt Date: 20170214
  Transmission Date: 20170428
  Serious: Yes (Hospitalization, Other)
  Sender: FDA-Public Use
  Company Number: CH-ASTELLAS-2017US003645

PATIENT
  Sex: Male

DRUGS (1)
  1. XTANDI [Suspect]
     Active Substance: ENZALUTAMIDE
     Indication: PROSTATE CANCER METASTATIC
     Route: 048
     Dates: start: 20170106

REACTIONS (4)
  - Polyarthritis [Unknown]
  - Bladder tamponade [Recovered/Resolved]
  - Malignant neoplasm progression [Unknown]
  - Gout [Unknown]

NARRATIVE: CASE EVENT DATE: 20170117
